FAERS Safety Report 9516120 (Version 1)
Quarter: 2013Q3

REPORT INFORMATION
  Report Type: Spontaneous
  Country: RU (occurrence: RU)
  Receive Date: 20130911
  Receipt Date: 20130911
  Transmission Date: 20140515
  Serious: Yes (Hospitalization)
  Sender: FDA-Public Use
  Company Number: RU-ABBOTT-13X-251-1144771-00

PATIENT
  Age: 45 Year
  Sex: Male

DRUGS (5)
  1. DEPAKINE CHRONO [Suspect]
     Indication: PRODUCT USED FOR UNKNOWN INDICATION
     Route: 048
     Dates: start: 2013, end: 2013
  2. CLOPIXOL [Suspect]
     Indication: BIPOLAR DISORDER
     Route: 048
  3. CLOPIXOL [Suspect]
     Indication: SCHIZOPHRENIA
  4. DEPAKINE CHRONO [Concomitant]
     Indication: PRODUCT USED FOR UNKNOWN INDICATION
  5. ANTIPSYCHOTICS [Concomitant]
     Indication: PRODUCT USED FOR UNKNOWN INDICATION

REACTIONS (1)
  - Sopor [Recovering/Resolving]
